FAERS Safety Report 4715384-4 (Version None)
Quarter: 2005Q3

REPORT INFORMATION
  Report Type: 
  Country: None (occurrence: None)
  Receive Date: 20050715
  Receipt Date: 20050413
  Transmission Date: 20060218
  Serious: Yes (Hospitalization, Disabling)
  Sender: FDA-Public Use
  Company Number: US-MERCK-0504USA02195

PATIENT
  Age: 75 Year
  Sex: Male
  Weight: 80 kg

DRUGS (15)
  1. VIOXX [Suspect]
     Indication: ARTHRALGIA
     Route: 048
     Dates: start: 20000901, end: 20040930
  2. DIOVAN [Concomitant]
     Indication: CARDIAC DISORDER
     Route: 065
     Dates: start: 19990101, end: 20050101
  3. COREG [Concomitant]
     Indication: CARDIAC DISORDER
     Route: 065
     Dates: start: 19990101, end: 20050101
  4. FUROSEMIDE [Concomitant]
     Route: 065
     Dates: start: 20020101, end: 20050101
  5. PRAVACHOL [Concomitant]
     Indication: BLOOD CHOLESTEROL INCREASED
     Route: 065
     Dates: start: 19880101, end: 20050101
  6. FOLIC ACID [Concomitant]
     Indication: ROUTINE HEALTH MAINTENANCE
     Route: 065
     Dates: start: 19880101, end: 20050101
  7. PROTONIX [Concomitant]
     Route: 065
  8. CLARINEX [Concomitant]
     Route: 065
  9. ZOLOFT [Concomitant]
     Route: 065
  10. POTASSIUM (UNSPECIFIED) [Concomitant]
     Route: 065
  11. CENTRUM [Concomitant]
     Route: 065
  12. CALCIUM (UNSPECIFIED) [Concomitant]
     Route: 065
  13. INSULIN [Concomitant]
     Route: 065
     Dates: start: 19890101
  14. NEXIUM [Concomitant]
     Route: 065
  15. VITAMIN E [Concomitant]
     Route: 065

REACTIONS (12)
  - ACUTE CORONARY SYNDROME [None]
  - BRONCHITIS [None]
  - CARDIAC FAILURE CONGESTIVE [None]
  - CHEST PAIN [None]
  - CORONARY ARTERY DISEASE [None]
  - CORONARY ARTERY RESTENOSIS [None]
  - HYPOTENSION [None]
  - ISCHAEMIC CARDIOMYOPATHY [None]
  - MYOCARDIAL INFARCTION [None]
  - NEOPLASM MALIGNANT [None]
  - PERITONITIS [None]
  - POSTOPERATIVE ILEUS [None]
